FAERS Safety Report 7038343-8 (Version None)
Quarter: 2010Q4

REPORT INFORMATION
  Report Type: 
  Country: None (occurrence: None)
  Receive Date: 20101011
  Receipt Date: 20091130
  Transmission Date: 20110411
  Serious: No
  Sender: FDA-Public Use
  Company Number: US-PFIZER INC-2009278237

PATIENT
  Sex: Male
  Weight: 67.131 kg

DRUGS (2)
  1. NEURONTIN [Suspect]
     Indication: POST HERPETIC NEURALGIA
     Dosage: 300 MG, 3X/DAY
     Route: 048
     Dates: start: 20030101
  2. DARVOCET-N 100 [Concomitant]
     Dosage: 100 MG, UNK

REACTIONS (2)
  - NEURALGIA [None]
  - NEUROPATHY PERIPHERAL [None]
